FAERS Safety Report 8233751-1 (Version None)
Quarter: 2012Q1

REPORT INFORMATION
  Report Type: 
  Country: None (occurrence: None)
  Receive Date: 20120326
  Receipt Date: 20120322
  Transmission Date: 20120608
  Serious: Yes (Other)
  Sender: FDA-Public Use
  Company Number: PHEH2012US004397

PATIENT
  Sex: Female

DRUGS (2)
  1. METOPROLOL SUCCINATE [Suspect]
  2. METOPROLOL SUCCINATE [Suspect]
     Dosage: 25 MG, QD
     Route: 048

REACTIONS (3)
  - FEELING ABNORMAL [None]
  - DIZZINESS [None]
  - SYNCOPE [None]
